FAERS Safety Report 9748029 (Version 1)
Quarter: 2013Q4

REPORT INFORMATION
  Report Type: Spontaneous
  Country: US (occurrence: US)
  Receive Date: 20131212
  Receipt Date: 20131212
  Transmission Date: 20140711
  Serious: No
  Sender: FDA-Public Use
  Company Number: US-TEVA-386805USA

PATIENT
  Age: 24 Year
  Sex: Female
  Weight: 59.93 kg

DRUGS (3)
  1. PARAGARD 380A [Suspect]
     Indication: CONTRACEPTION
     Route: 015
     Dates: start: 20120920
  2. ALBUTEROL [Concomitant]
     Indication: ASTHMA
     Dosage: AS NEEDED
  3. MELATONIN [Concomitant]
     Indication: INSOMNIA
     Dosage: AS NEEDED

REACTIONS (1)
  - Menorrhagia [Not Recovered/Not Resolved]
